FAERS Safety Report 16862913 (Version 1)
Quarter: 2019Q3

REPORT INFORMATION
  Report Type: Spontaneous
  Country: CA (occurrence: CA)
  Receive Date: 20190927
  Receipt Date: 20190927
  Transmission Date: 20191005
  Serious: Yes (Life-Threatening, Hospitalization, Other)
  Sender: FDA-Public Use
  Company Number: CA-TEVA-2019-CA-1113875

PATIENT
  Age: 81 Year
  Sex: Female
  Weight: 92 kg

DRUGS (7)
  1. HYDROCHLOROTHIAZIDE. [Concomitant]
     Active Substance: HYDROCHLOROTHIAZIDE
  2. ACEBUTOLOL [Concomitant]
     Active Substance: ACEBUTOLOL
  3. IBUPROFEN. [Suspect]
     Active Substance: IBUPROFEN
     Indication: PRODUCT USED FOR UNKNOWN INDICATION
     Dosage: 1200 MILLIGRAM DAILY;
     Route: 048
  4. DILTIAZEM ER [Concomitant]
     Active Substance: DILTIAZEM
  5. OXYCODONE [Concomitant]
     Active Substance: OXYCODONE
  6. GABAPENTIN. [Concomitant]
     Active Substance: GABAPENTIN
  7. DIGOXIN. [Concomitant]
     Active Substance: DIGOXIN

REACTIONS (1)
  - Acute myocardial infarction [Recovered/Resolved]
